FAERS Safety Report 16976866 (Version 1)
Quarter: 2019Q4

REPORT INFORMATION
  Report Type: Spontaneous
  Country: PT (occurrence: PT)
  Receive Date: 20191030
  Receipt Date: 20191030
  Transmission Date: 20200122
  Serious: Yes (Other)
  Sender: FDA-Public Use
  Company Number: PT-SAMSUNG BIOEPIS-SB-2019-31366

PATIENT
  Age: 44 Year
  Sex: Female

DRUGS (1)
  1. ADALIMUMAB [Suspect]
     Active Substance: ADALIMUMAB
     Indication: CROHN^S DISEASE
     Dosage: UNKNOWN
     Route: 065

REACTIONS (2)
  - Condition aggravated [Unknown]
  - Drug ineffective [Unknown]
